FAERS Safety Report 21201536 (Version 1)
Quarter: 2022Q3

REPORT INFORMATION
  Report Type: Report from Study
  Country: US (occurrence: US)
  Receive Date: 20220811
  Receipt Date: 20220811
  Transmission Date: 20221027
  Serious: No
  Sender: FDA-Public Use
  Company Number: US-AURINIA PHARMACEUTICALS INC.-AUR-001398

PATIENT
  Sex: Female

DRUGS (1)
  1. LUPKYNIS [Suspect]
     Active Substance: VOCLOSPORIN
     Indication: Lupus nephritis
     Dosage: 23.7 MILLIGRAM, BID
     Route: 048

REACTIONS (6)
  - Abdominal distension [Unknown]
  - Abdominal discomfort [Unknown]
  - Feeding disorder [Unknown]
  - Dyspepsia [Unknown]
  - Product odour abnormal [Unknown]
  - Product packaging difficult to open [Unknown]
